FAERS Safety Report 5730313-2 (Version None)
Quarter: 2008Q2

REPORT INFORMATION
  Report Type: 
  Country: None (occurrence: None)
  Receive Date: 20080505
  Receipt Date: 20080505
  Transmission Date: 20081010
  Serious: Yes (Other)
  Sender: FDA-Public Use
  Company Number: None

PATIENT
  Age: 52 Year
  Sex: Female

DRUGS (1)
  1. AVONEX [Suspect]
     Indication: MULTIPLE SCLEROSIS
     Dosage: 30MCG ONCE WEEKLY IM
     Route: 030
     Dates: start: 20020101, end: 20080502

REACTIONS (4)
  - PAIN OF SKIN [None]
  - RASH MACULAR [None]
  - SKIN BURNING SENSATION [None]
  - SKIN DISCOLOURATION [None]
